FAERS Safety Report 23618851 (Version 3)
Quarter: 2024Q3

REPORT INFORMATION
  Report Type: Spontaneous
  Country: US (occurrence: US)
  Receive Date: 20240311
  Receipt Date: 20240701
  Transmission Date: 20241017
  Serious: Yes (Other)
  Sender: PFIZER
  Company Number: US-PFIZER INC-PV202400033345

PATIENT
  Age: 71 Year
  Sex: Female

DRUGS (3)
  1. IBRANCE [Suspect]
     Active Substance: PALBOCICLIB
     Indication: Breast cancer metastatic
     Dosage: 125 MG
     Dates: start: 202205
  2. IBRANCE [Suspect]
     Active Substance: PALBOCICLIB
     Dosage: 100 MG
     Route: 048
  3. LETROZOLE [Concomitant]
     Active Substance: LETROZOLE
     Dosage: UNK

REACTIONS (7)
  - Neutropenia [Recovered/Resolved]
  - Nausea [Recovered/Resolved]
  - Oedema [Recovered/Resolved]
  - White blood cell count decreased [Recovered/Resolved]
  - Peripheral swelling [Recovered/Resolved]
  - Scratch [Recovered/Resolved]
  - Skin exfoliation [Recovered/Resolved]
